FAERS Safety Report 4313113-X (Version None)
Quarter: 2004Q1

REPORT INFORMATION
  Report Type: 
  Country: None (occurrence: None)
  Receive Date: 20040305
  Receipt Date: 20040305
  Transmission Date: 20041129
  Serious: Yes (Hospitalization)
  Sender: FDA-Public Use
  Company Number: None

PATIENT
  Age: 46 Year
  Sex: Male
  Weight: 94 kg

DRUGS (16)
  1. TARCEVA [Suspect]
     Indication: BRAIN NEOPLASM
     Dosage: PO QD 150 MG
     Route: 048
     Dates: start: 20040119, end: 20040224
  2. TARCEVA [Suspect]
     Indication: GLIOBLASTOMA MULTIFORME
     Dosage: PO QD 150 MG
     Route: 048
     Dates: start: 20040119, end: 20040224
  3. TARCEVA [Suspect]
     Indication: BRAIN NEOPLASM
     Dosage: PO QD 150 MG
     Route: 048
     Dates: start: 20040303
  4. TARCEVA [Suspect]
     Indication: GLIOBLASTOMA MULTIFORME
     Dosage: PO QD 150 MG
     Route: 048
     Dates: start: 20040303
  5. TEMODAR [Suspect]
     Indication: BRAIN NEOPLASM
     Dosage: PO QD 161.25 MG
     Route: 048
     Dates: start: 20040119, end: 20040224
  6. TEMODAR [Suspect]
     Indication: GLIOBLASTOMA MULTIFORME
     Dosage: PO QD 161.25 MG
     Route: 048
     Dates: start: 20040119, end: 20040224
  7. TEMODAR [Suspect]
     Indication: BRAIN NEOPLASM
     Dosage: PO QD 161.25 MG
     Route: 048
     Dates: start: 20040303
  8. TEMODAR [Suspect]
     Indication: GLIOBLASTOMA MULTIFORME
     Dosage: PO QD 161.25 MG
     Route: 048
     Dates: start: 20040303
  9. COLACE [Concomitant]
  10. KYTRIL [Concomitant]
  11. PEPCID [Concomitant]
  12. DECADRON [Concomitant]
  13. BENADRYL [Concomitant]
  14. KEPPRA [Concomitant]
  15. OXACILLIN [Concomitant]
  16. RADIATION THERAPY [Concomitant]

REACTIONS (2)
  - COUGH [None]
  - PNEUMOTHORAX [None]
